FAERS Safety Report 5799985-0 (Version None)
Quarter: 2008Q3

REPORT INFORMATION
  Report Type: 
  Country: None (occurrence: None)
  Receive Date: 20080701
  Receipt Date: 20080616
  Transmission Date: 20090109
  Serious: Yes (Hospitalization)
  Sender: FDA-Public Use
  Company Number: 2008BI009435

PATIENT
  Age: 54 Year
  Sex: Male
  Weight: 154.223 kg

DRUGS (3)
  1. AVONEX [Suspect]
     Indication: MULTIPLE SCLEROSIS
     Dosage: 30 UG QW IM
     Route: 030
     Dates: start: 20020830
  2. MINOXIDIL [Concomitant]
  3. LISINOPRIL [Concomitant]

REACTIONS (8)
  - ARTHRITIS [None]
  - CORONARY ARTERY OCCLUSION [None]
  - FATIGUE [None]
  - HEMIPARESIS [None]
  - MUSCLE SPASMS [None]
  - MYALGIA [None]
  - OROPHARYNGEAL PAIN [None]
  - THROMBOSIS [None]
